FAERS Safety Report 8539050-2 (Version None)
Quarter: 2012Q3

REPORT INFORMATION
  Report Type: 
  Country: None (occurrence: None)
  Receive Date: 20120726
  Receipt Date: 20120719
  Transmission Date: 20120928
  Serious: No
  Sender: FDA-Public Use
  Company Number: CA-JNJFOC-20120710909

PATIENT
  Sex: Female
  Weight: 74 kg

DRUGS (10)
  1. HYDROCHLOROTHIAZIDE [Concomitant]
     Route: 065
  2. CALCIUM [Concomitant]
     Route: 065
  3. VITAMIN D [Concomitant]
     Route: 065
  4. VITAMINE E [Concomitant]
     Route: 065
  5. REMICADE [Suspect]
     Indication: CROHN'S DISEASE
     Route: 042
     Dates: start: 20111206
  6. VITAMIN B-12 [Concomitant]
     Route: 065
  7. BUSCOPAN [Concomitant]
     Route: 065
  8. RABEPRAZOLE SODIUM [Concomitant]
     Route: 065
  9. IMURAN [Concomitant]
     Route: 065
  10. LOVAZA [Concomitant]
     Route: 065

REACTIONS (1)
  - HERPES ZOSTER [None]
